FAERS Safety Report 5780605-6 (Version None)
Quarter: 2008Q2

REPORT INFORMATION
  Report Type: 
  Country: None (occurrence: None)
  Receive Date: 20080620
  Receipt Date: 20080613
  Transmission Date: 20081010
  Serious: Yes (Other)
  Sender: FDA-Public Use
  Company Number: US-ELI_LILLY_AND_COMPANY-US200806003175

PATIENT
  Sex: Female

DRUGS (2)
  1. BYETTA [Suspect]
     Indication: TYPE 2 DIABETES MELLITUS
     Dosage: 5 UG, 2/D
     Route: 058
     Dates: start: 20050101
  2. METFORMIN [Concomitant]
     Indication: DIABETES MELLITUS
     Dates: end: 20070101

REACTIONS (6)
  - BLOOD GLUCOSE INCREASED [None]
  - CELLULITIS [None]
  - EYELID DISORDER [None]
  - LIP AND/OR ORAL CAVITY CANCER [None]
  - MEMORY IMPAIRMENT [None]
  - SKIN CANCER [None]
